FAERS Safety Report 14092942 (Version 2)
Quarter: 2017Q4

REPORT INFORMATION
  Report Type: Report from Study
  Country: US (occurrence: US)
  Receive Date: 20171016
  Receipt Date: 20171110
  Transmission Date: 20180321
  Serious: Yes (Other)
  Sender: FDA-Public Use
  Company Number: US-GILEAD-2017-0298703

PATIENT
  Age: 70 Year
  Sex: Male

DRUGS (3)
  1. IDELALISIB [Suspect]
     Active Substance: IDELALISIB
     Dosage: 150 MG, BID
     Route: 048
     Dates: start: 20170208
  2. IDELALISIB [Suspect]
     Active Substance: IDELALISIB
     Dosage: 150 MG, QD
     Route: 048
     Dates: start: 20170328
  3. IDELALISIB [Suspect]
     Active Substance: IDELALISIB
     Indication: B-CELL LYMPHOMA
     Dosage: 150 MG, BID
     Route: 048
     Dates: start: 20160321, end: 20170120

REACTIONS (20)
  - Decreased appetite [Unknown]
  - Blood cholesterol increased [Unknown]
  - Fatigue [Unknown]
  - Tooth disorder [Unknown]
  - Malignant melanoma [Unknown]
  - Depression [Unknown]
  - Insomnia [Unknown]
  - Visual impairment [Unknown]
  - Wound haemorrhage [Unknown]
  - Hypophagia [Unknown]
  - Dehydration [Unknown]
  - Head injury [Unknown]
  - Diarrhoea [Recovered/Resolved]
  - Loss of consciousness [Recovered/Resolved]
  - Gastrooesophageal reflux disease [Unknown]
  - Thirst [Unknown]
  - Squamous cell carcinoma [Unknown]
  - Weight decreased [Unknown]
  - Attention deficit/hyperactivity disorder [Unknown]
  - Back pain [Unknown]

NARRATIVE: CASE EVENT DATE: 201708
